FAERS Safety Report 6022927-X (Version None)
Quarter: 2008Q4

REPORT INFORMATION
  Report Type: 
  Country: None (occurrence: None)
  Receive Date: 20081224
  Receipt Date: 20081224
  Transmission Date: 20090506
  Serious: Yes (Hospitalization, Other)
  Sender: FDA-Public Use
  Company Number: None

PATIENT
  Age: 29 Year
  Sex: Female
  Weight: 68.0396 kg

DRUGS (1)
  1. NECON 1/35 WATSON LABS [Suspect]
     Indication: CONTRACEPTION
     Dosage: 1 PILL ONCE A DAY OROPHARINGEAL
     Route: 049
     Dates: start: 20081001, end: 20081130

REACTIONS (6)
  - DIZZINESS [None]
  - FATIGUE [None]
  - HEADACHE [None]
  - NIGHT SWEATS [None]
  - PYREXIA [None]
  - VISION BLURRED [None]
